FAERS Safety Report 20526098 (Version 1)
Quarter: 2022Q1

REPORT INFORMATION
  Report Type: Spontaneous
  Country: US (occurrence: US)
  Receive Date: 20220228
  Receipt Date: 20220228
  Transmission Date: 20220423
  Serious: Yes (Hospitalization)
  Sender: FDA-Public Use
  Company Number: US-PFIZER INC-202200296367

PATIENT
  Age: 50 Year
  Sex: Female

DRUGS (1)
  1. IBRANCE [Suspect]
     Active Substance: PALBOCICLIB
     Dosage: 125 MG, 1 TABLET BY MOUTH ONCE DAILY FOR 21 DAYS FOLLOWED BY 7 DAYS OFF TREATMENT)
     Route: 048
     Dates: start: 20211220

REACTIONS (1)
  - Illness [Unknown]
